FAERS Safety Report 7113155-5 (Version None)
Quarter: 2010Q4

REPORT INFORMATION
  Report Type: 
  Country: None (occurrence: None)
  Receive Date: 20101119
  Receipt Date: 20101112
  Transmission Date: 20110411
  Serious: Yes (Death, Life-Threatening, Hospitalization, Disabling, Other)
  Sender: FDA-Public Use
  Company Number: US-ELI_LILLY_AND_COMPANY-US201010005608

PATIENT
  Age: 44 Year
  Sex: Male
  Weight: 46.576 kg

DRUGS (4)
  1. EFFIENT [Suspect]
     Indication: ACUTE MYOCARDIAL INFARCTION
     Dosage: 60 MG, LOADING DOSE
     Dates: start: 20100607
  2. TENECTEPLASE [Concomitant]
     Indication: ACUTE MYOCARDIAL INFARCTION
     Dosage: 50 MG, ONE TIME
     Route: 040
  3. ASPIRIN [Concomitant]
  4. CLOPIDOGREL [Concomitant]
     Dosage: 75 MG, DAILY (1/D)
     Dates: start: 20100601

REACTIONS (1)
  - HAEMORRHAGE INTRACRANIAL [None]
